FAERS Safety Report 19310553 (Version 4)
Quarter: 2021Q3

REPORT INFORMATION
  Report Type: Report from Study
  Country: CN (occurrence: CN)
  Receive Date: 20210526
  Receipt Date: 20210825
  Transmission Date: 20211014
  Serious: Yes (Hospitalization)
  Sender: FDA-Public Use
  Company Number: CN-PFIZER INC-2021566324

PATIENT
  Age: 45 Year
  Sex: Male
  Weight: 47 kg

DRUGS (15)
  1. POTASSIUM CHLORIDE. [Concomitant]
     Active Substance: POTASSIUM CHLORIDE
     Indication: INFUSION RELATED REACTION
     Dosage: 1.5 G, SINGLE
     Route: 041
     Dates: start: 20210508, end: 20210508
  2. BLINDED THERAPY [Suspect]
     Active Substance: INVESTIGATIONAL PRODUCT
     Dosage: UNK, EVERY 3 WEEKS
     Route: 041
     Dates: start: 20210508, end: 20210508
  3. CIMETIDINE [Concomitant]
     Active Substance: CIMETIDINE
     Indication: PROPHYLAXIS OF NAUSEA AND VOMITING
  4. BO BEI [Suspect]
     Active Substance: CARBOPLATIN
     Indication: SQUAMOUS CELL CARCINOMA OF LUNG
     Dosage: 750 MG, EVERY 3 WEEKS
     Route: 041
     Dates: start: 20210416, end: 20210416
  5. ASPIRIN [ACETYLSALICYLIC ACID] [Concomitant]
     Active Substance: ASPIRIN
     Indication: ANAPHYLAXIS PROPHYLAXIS
  6. METOCLOPRAMIDE DIHYDROCHLORIDE [Concomitant]
     Indication: INFUSION RELATED REACTION
     Dosage: 10 MG, 1X/DAY
     Route: 030
     Dates: start: 20010508, end: 20210508
  7. TOCILIZUMAB. [Concomitant]
     Active Substance: TOCILIZUMAB
     Indication: INFUSION RELATED REACTION
     Dosage: 160 MG, SINGLE
     Route: 041
     Dates: start: 20210508, end: 20210508
  8. ANZATAX (PACLITAXEL) [Suspect]
     Active Substance: PACLITAXEL
     Dosage: 190 MG, EVERY 3 WEEKS
     Route: 041
     Dates: start: 20210519, end: 20210519
  9. BLINDED THERAPY [Suspect]
     Active Substance: INVESTIGATIONAL PRODUCT
     Indication: SQUAMOUS CELL CARCINOMA OF LUNG
     Dosage: UNK, EVERY 3 WEEKS
     Route: 041
     Dates: start: 20210415, end: 20210415
  10. PROMETHAZINE HYDROCHLORIDE. [Concomitant]
     Active Substance: PROMETHAZINE HYDROCHLORIDE
     Dosage: 25 MG, SINGLE
     Route: 030
     Dates: start: 20210508, end: 20210508
  11. CIMETIDINE [Concomitant]
     Active Substance: CIMETIDINE
     Indication: INFUSION RELATED REACTION
     Dosage: 0.4 G, SINGLE
     Route: 041
     Dates: start: 20210508, end: 20210508
  12. CIMETIDINE [Concomitant]
     Active Substance: CIMETIDINE
     Indication: GASTROINTESTINAL DISORDER PROPHYLAXIS
  13. ASPIRIN [ACETYLSALICYLIC ACID] [Concomitant]
     Active Substance: ASPIRIN
     Indication: INFUSION RELATED REACTION
     Dosage: ENTERIC?COATED TABLET, 0.1 G, SINGLE
     Route: 048
     Dates: start: 20210508, end: 20210508
  14. ANZATAX (PACLITAXEL) [Suspect]
     Active Substance: PACLITAXEL
     Indication: SQUAMOUS CELL CARCINOMA OF LUNG
     Dosage: 261 MG, EVERY 3 WEEKS
     Route: 041
     Dates: start: 20210416, end: 20210416
  15. BO BEI [Suspect]
     Active Substance: CARBOPLATIN
     Dosage: 485 MG, EVERY 3 WEEKS
     Route: 041
     Dates: start: 20210519, end: 20210519

REACTIONS (1)
  - Lung abscess [Recovered/Resolved]

NARRATIVE: CASE EVENT DATE: 20210508
